FAERS Safety Report 9509078 (Version 1)
Quarter: 2013Q3

REPORT INFORMATION
  Report Type: Spontaneous
  Country: US (occurrence: US)
  Receive Date: 20130909
  Receipt Date: 20130909
  Transmission Date: 20140515
  Serious: No
  Sender: FDA-Public Use
  Company Number: US-BRISTOL-MYERS SQUIBB COMPANY-19051416

PATIENT
  Age: 47 Year
  Sex: Female
  Weight: 108.84 kg

DRUGS (2)
  1. ABILIFY [Suspect]
     Indication: DEPRESSION
  2. VENLAFAXINE HCL [Concomitant]

REACTIONS (1)
  - Depressed mood [Unknown]
